FAERS Safety Report 4885916-4 (Version None)
Quarter: 2006Q1

REPORT INFORMATION
  Report Type: 
  Country: None (occurrence: None)
  Receive Date: 20060120
  Receipt Date: 20051216
  Transmission Date: 20060701
  Serious: Yes (Death)
  Sender: FDA-Public Use
  Company Number: GB-ROCHE-429116

PATIENT
  Age: 67 Year
  Sex: Female
  Weight: 57 kg

DRUGS (4)
  1. XELODA [Suspect]
     Indication: DRUG USE FOR UNKNOWN INDICATION
     Route: 048
  2. FE SULFATE [Concomitant]
     Route: 048
  3. THYROXINE [Concomitant]
     Route: 048
  4. LANSOPRAZOLE [Concomitant]
     Route: 048

REACTIONS (1)
  - CLOSTRIDIUM COLITIS [None]
